FAERS Safety Report 11534013 (Version 1)
Quarter: 2015Q3

REPORT INFORMATION
  Report Type: Report from Study
  Country: US (occurrence: US)
  Receive Date: 20150922
  Receipt Date: 20150922
  Transmission Date: 20151125
  Serious: Yes (Other)
  Sender: FDA-Public Use
  Company Number: US-AMGEN-USASL2015097196

PATIENT
  Age: 34 Year
  Sex: Male

DRUGS (1)
  1. ENBREL [Suspect]
     Active Substance: ETANERCEPT
     Indication: ANKYLOSING SPONDYLITIS
     Dosage: UNK
     Route: 065
     Dates: start: 201507

REACTIONS (5)
  - Musculoskeletal stiffness [Unknown]
  - Swelling [Unknown]
  - Drug effect incomplete [Unknown]
  - Pain [Unknown]
  - Uveitis [Unknown]

NARRATIVE: CASE EVENT DATE: 2015
